FAERS Safety Report 8438118-9 (Version None)
Quarter: 2012Q2

REPORT INFORMATION
  Report Type: 
  Country: None (occurrence: None)
  Receive Date: 20120614
  Receipt Date: 20120605
  Transmission Date: 20120825
  Serious: Yes (Other)
  Sender: FDA-Public Use
  Company Number: GXBR2012US001511

PATIENT
  Sex: Female

DRUGS (1)
  1. OMNITROPE [Suspect]
     Dosage: UNK DF, UNK
     Dates: start: 20100201, end: 20120401

REACTIONS (2)
  - HEADACHE [None]
  - SYNCOPE [None]
